FAERS Safety Report 6440327-5 (Version None)
Quarter: 2009Q4

REPORT INFORMATION
  Report Type: 
  Country: None (occurrence: None)
  Receive Date: 20091113
  Receipt Date: 20091105
  Transmission Date: 20100525
  Serious: Yes (Hospitalization)
  Sender: FDA-Public Use
  Company Number: BR-ABBOTT-09P-020-0575789-01

PATIENT
  Sex: Male

DRUGS (5)
  1. RITONAVIR SOFT GELATIN CAPSULES [Suspect]
     Indication: HIV INFECTION
     Route: 048
     Dates: start: 20070718
  2. TMC 114 [Concomitant]
     Indication: HIV INFECTION
     Route: 048
     Dates: start: 20070718
  3. TMC 125 [Concomitant]
     Indication: HIV INFECTION
     Route: 048
     Dates: start: 20070718
  4. RALTEGRAVIR [Concomitant]
     Indication: HIV INFECTION
  5. 3 TC/AZT ELEA [Concomitant]
     Indication: HIV INFECTION

REACTIONS (1)
  - MESENTERIC VEIN THROMBOSIS [None]
